FAERS Safety Report 6038850-0 (Version None)
Quarter: 2009Q1

REPORT INFORMATION
  Report Type: 
  Country: None (occurrence: None)
  Receive Date: 20090115
  Receipt Date: 20090107
  Transmission Date: 20090719
  Serious: Yes (Other)
  Sender: FDA-Public Use
  Company Number: FR-ASTRAZENECA-2009CG00142

PATIENT
  Age: 60 Year
  Sex: Male

DRUGS (4)
  1. SYMBICORT [Suspect]
     Indication: ASTHMA
     Dosage: 320/9 UG PER DOSE, TWO INHALATIONS TWICE DAILY
     Route: 055
     Dates: start: 19940101, end: 20090103
  2. SYMBICORT [Suspect]
     Dosage: 160/4.5 UG PER DOSE, TWO INHALATIONS TWICE DAILY
     Route: 055
     Dates: start: 20090104
  3. XATRAL [Concomitant]
  4. DIPROSONE [Concomitant]
     Indication: DERMATITIS ATOPIC

REACTIONS (2)
  - LYMPHOPENIA [None]
  - PURPURA [None]
